FAERS Safety Report 22388884 (Version 2)
Quarter: 2023Q2

REPORT INFORMATION
  Report Type: Report from Study
  Country: CZ (occurrence: CZ)
  Receive Date: 20230531
  Receipt Date: 20230621
  Transmission Date: 20230721
  Serious: Yes (Other)
  Sender: FDA-Public Use
  Company Number: CZ-002147023-NVSC2023CZ115699

PATIENT

DRUGS (1)
  1. RUXOLITINIB [Suspect]
     Active Substance: RUXOLITINIB
     Indication: Toxicity to various agents
     Dosage: 15 MG, BID (2X DAILY)
     Route: 065
     Dates: start: 20171001, end: 20200124

REACTIONS (5)
  - Anaemia [Unknown]
  - Product use in unapproved indication [Unknown]
  - Thrombocytopenia [Unknown]
  - Pancytopenia [Unknown]
  - Neutropenia [Unknown]

NARRATIVE: CASE EVENT DATE: 20200124
